FAERS Safety Report 13549589 (Version 2)
Quarter: 2017Q2

REPORT INFORMATION
  Report Type: Spontaneous
  Country: US (occurrence: US)
  Receive Date: 20170516
  Receipt Date: 20170601
  Transmission Date: 20170830
  Serious: Yes (Disabling, Other)
  Sender: FDA-Public Use
  Company Number: US-IPSEN BIOPHARMACEUTICALS, INC.-2017-03741

PATIENT
  Sex: Female

DRUGS (4)
  1. DYSPORT [Suspect]
     Active Substance: ABOBOTULINUMTOXINA
     Indication: SKIN WRINKLING
  2. DYSPORT [Suspect]
     Active Substance: ABOBOTULINUMTOXINA
     Indication: OFF LABEL USE
  3. DYSPORT [Suspect]
     Active Substance: ABOBOTULINUMTOXINA
     Indication: SKIN WRINKLING
  4. DYSPORT [Suspect]
     Active Substance: ABOBOTULINUMTOXINA
     Indication: SKIN WRINKLING
     Dosage: 130 UNITS
     Route: 065
     Dates: start: 20170228, end: 20170228

REACTIONS (16)
  - Neck pain [Not Recovered/Not Resolved]
  - Rash erythematous [Unknown]
  - Musculoskeletal pain [Not Recovered/Not Resolved]
  - Pelvic pain [Unknown]
  - Lacrimation increased [Unknown]
  - Botulism [Unknown]
  - Musculoskeletal pain [Unknown]
  - Back pain [Not Recovered/Not Resolved]
  - Fatigue [Not Recovered/Not Resolved]
  - Off label use [Unknown]
  - Dyspnoea [Unknown]
  - Hypertension [Unknown]
  - Eyelid ptosis [Unknown]
  - Headache [Not Recovered/Not Resolved]
  - Gait disturbance [Not Recovered/Not Resolved]
  - Neuromuscular toxicity [Unknown]

NARRATIVE: CASE EVENT DATE: 2017
